FAERS Safety Report 21007972 (Version 1)
Quarter: 2022Q2

REPORT INFORMATION
  Report Type: Spontaneous
  Country: NL (occurrence: NL)
  Receive Date: 20220627
  Receipt Date: 20220627
  Transmission Date: 20220721
  Serious: Yes (Death, Hospitalization, Other)
  Sender: FDA-Public Use
  Company Number: NL-AMGEN-NLDSP2022104884

PATIENT

DRUGS (10)
  1. ADALIMUMAB [Suspect]
     Active Substance: ADALIMUMAB
     Indication: Product used for unknown indication
     Dosage: UNK
     Route: 065
  2. PREDNISOLONE [Concomitant]
     Active Substance: PREDNISOLONE
  3. METHOTREXATE [Concomitant]
     Active Substance: METHOTREXATE
  4. MYCOPHENOLATE MOFETIL [Concomitant]
     Active Substance: MYCOPHENOLATE MOFETIL
  5. USTEKINUMAB [Concomitant]
     Active Substance: USTEKINUMAB
  6. RITUXIMAB [Concomitant]
     Active Substance: RITUXIMAB
  7. OCRELIZUMAB [Concomitant]
     Active Substance: OCRELIZUMAB
  8. TOFACITINIB [Concomitant]
     Active Substance: TOFACITINIB
  9. SECUKINUMAB [Concomitant]
     Active Substance: SECUKINUMAB
  10. VEDOLIZUMAB [Concomitant]
     Active Substance: VEDOLIZUMAB

REACTIONS (17)
  - Multiple organ dysfunction syndrome [Fatal]
  - Autoimmune disorder [Unknown]
  - Intestinal stenosis [Unknown]
  - Chronic allograft nephropathy [Unknown]
  - Intestinal obstruction [Unknown]
  - Intestinal haemorrhage [Unknown]
  - Acute kidney injury [Unknown]
  - Hypoglycaemia [Unknown]
  - Transplant rejection [Unknown]
  - Sepsis [Fatal]
  - Cytomegalovirus colitis [Unknown]
  - Herpes zoster [Unknown]
  - Urinary tract infection [Unknown]
  - Adverse event [Unknown]
  - Transplant failure [Unknown]
  - Asthma [Unknown]
  - COVID-19 [Unknown]
